FAERS Safety Report 7546960-1 (Version None)
Quarter: 2011Q2

REPORT INFORMATION
  Report Type: 
  Country: None (occurrence: None)
  Receive Date: 20110607
  Receipt Date: 20110527
  Transmission Date: 20111010
  Serious: Yes (Other)
  Sender: FDA-Public Use
  Company Number: 2011AP001082

PATIENT
  Age: 15 Year
  Sex: Female

DRUGS (3)
  1. LAMOTRIGINE [Suspect]
     Indication: IDIOPATHIC GENERALISED EPILEPSY
     Dosage: 200 MG; BID PO
     Route: 048
     Dates: start: 20080523, end: 20100602
  2. VALPROATE SODIUM [Concomitant]
  3. KEPPRA [Suspect]
     Indication: JUVENILE MYOCLONIC EPILEPSY
     Dosage: 1750 MG; BID PO, 1500 MG; PO; BID
     Route: 048

REACTIONS (5)
  - THERMAL BURN [None]
  - MOOD ALTERED [None]
  - GRAND MAL CONVULSION [None]
  - CONDITION AGGRAVATED [None]
  - AGGRESSION [None]
